FAERS Safety Report 8165460-1 (Version None)
Quarter: 2012Q1

REPORT INFORMATION
  Report Type: 
  Country: None (occurrence: None)
  Receive Date: 20120227
  Receipt Date: 20120222
  Transmission Date: 20120608
  Serious: Yes (Hospitalization, Other)
  Sender: FDA-Public Use
  Company Number: DE-SHIRE-SPV1-2012-00041

PATIENT
  Sex: Female

DRUGS (3)
  1. MARCUMAR [Concomitant]
     Indication: ATRIAL FIBRILLATION
     Dosage: UNK, UNKNOWN
     Route: 065
  2. ALKERAN [Concomitant]
     Indication: MYELOPROLIFERATIVE DISORDER
     Dosage: 2 MG, 3X/WEEK
     Route: 065
     Dates: start: 20080731
  3. ANAGRELIDE HYDROCHLORIDE [Suspect]
     Indication: POLYCYTHAEMIA VERA
     Dosage: 1 DF, 2X/DAY:BID
     Route: 065
     Dates: start: 20041125

REACTIONS (3)
  - EPISTAXIS [None]
  - OFF LABEL USE [None]
  - TRANSIENT ISCHAEMIC ATTACK [None]
